FAERS Safety Report 9172790 (Version 2)
Quarter: 2013Q4

REPORT INFORMATION
  Report Type: Spontaneous
  Country: US (occurrence: FR)
  Receive Date: 20120911
  Receipt Date: 20131105
  Transmission Date: 20140711
  Serious: Yes (Death, Life-Threatening, Hospitalization, Other)
  Sender: FDA-Public Use
  Company Number: US-009507513-1008FRA00062

PATIENT
  Age: 53 Year
  Sex: Male

DRUGS (11)
  1. ISENTRESS [Suspect]
     Indication: HIV INFECTION
     Dosage: 800 MG, QD
     Route: 048
     Dates: start: 20100129, end: 20100304
  2. SUSTIVA [Suspect]
     Indication: HIV INFECTION
     Dosage: 600 MG, QD
     Route: 048
     Dates: start: 2004
  3. TELZIR [Suspect]
     Indication: HIV INFECTION
     Dosage: 1400 MG, QD
     Route: 048
     Dates: start: 2004
  4. NORVIR [Suspect]
     Indication: HIV INFECTION
     Dosage: 200 MG, QD
     Route: 048
     Dates: start: 2004
  5. GLUCOVANCE [Suspect]
     Indication: TYPE 2 DIABETES MELLITUS
     Dosage: 1000 MG/5 MG, QD
     Route: 048
     Dates: start: 2005
  6. REVATIO [Suspect]
     Indication: PULMONARY HYPERTENSION
     Dosage: 20 MG, TID
     Route: 048
     Dates: start: 200907
  7. VIDEX [Suspect]
     Route: 048
     Dates: start: 2004, end: 20100129
  8. EFFEXOR [Concomitant]
     Indication: DEPRESSION
     Dosage: 37.5 MG, QD
     Route: 048
     Dates: start: 20050101
  9. RISPERDAL [Concomitant]
     Indication: DEPRESSION
     Dosage: 4 MG, BID
     Route: 048
     Dates: start: 20050101
  10. MEPRONIZINE [Concomitant]
     Indication: DEPRESSION
     Dosage: 1 DF, QD
     Route: 048
     Dates: start: 20050101
  11. ATARAX (ALPRAZOLAM) [Concomitant]
     Indication: DEPRESSION
     Dosage: 100 MG, QD
     Route: 048
     Dates: start: 20050101

REACTIONS (7)
  - Metabolic acidosis [Fatal]
  - Hyperlactacidaemia [Fatal]
  - Hepatic failure [Fatal]
  - Ventricular arrhythmia [Fatal]
  - Shock [Fatal]
  - Dyspnoea [Fatal]
  - Insomnia [Fatal]
